FAERS Safety Report 14011750 (Version 1)
Quarter: 2017Q3

REPORT INFORMATION
  Report Type: Spontaneous
  Country: AU (occurrence: AU)
  Receive Date: 20170926
  Receipt Date: 20170926
  Transmission Date: 20171128
  Serious: Yes (Life-Threatening, Hospitalization)
  Sender: FDA-Public Use
  Company Number: PHHY2017AU139847

PATIENT
  Age: 41 Year
  Sex: Female

DRUGS (1)
  1. DESVENLAFAXINE SUCCINATE. [Suspect]
     Active Substance: DESVENLAFAXINE SUCCINATE
     Indication: DEPRESSION
     Route: 065

REACTIONS (8)
  - Hyponatraemia [Recovered/Resolved]
  - Hypophagia [Recovered/Resolved]
  - Confusional state [Recovered/Resolved]
  - Flank pain [Recovered/Resolved]
  - Rhabdomyolysis [Recovered/Resolved]
  - Anuria [Recovered/Resolved]
  - Dysarthria [Recovered/Resolved]
  - Acute kidney injury [Recovered/Resolved]
